FAERS Safety Report 24839273 (Version 1)
Quarter: 2025Q1

REPORT INFORMATION
  Report Type: Report from Study
  Country: US (occurrence: US)
  Receive Date: 20250114
  Receipt Date: 20250114
  Transmission Date: 20250409
  Serious: Yes (Hospitalization)
  Sender: ABBVIE
  Company Number: US-ABBVIE-6081358

PATIENT
  Age: 69 Year
  Sex: Male

DRUGS (4)
  1. HUMIRA [Suspect]
     Active Substance: ADALIMUMAB
     Indication: Crohn^s disease
     Dosage: CITRATE FREE
     Route: 058
     Dates: start: 20240203, end: 202412
  2. METOPROLOL [Concomitant]
     Active Substance: METOPROLOL
     Indication: Blood cholesterol
     Dates: start: 2022
  3. ATORVASTATIN [Concomitant]
     Active Substance: ATORVASTATIN
     Indication: Hypertension
     Dates: start: 2022
  4. CHANTIX [Concomitant]
     Active Substance: VARENICLINE TARTRATE
     Indication: Hypertension
     Dates: start: 2022

REACTIONS (3)
  - Drug resistance [Recovering/Resolving]
  - Sepsis [Recovering/Resolving]
  - Tremor [Recovering/Resolving]

NARRATIVE: CASE EVENT DATE: 20241001
